FAERS Safety Report 9472108 (Version 1)
Quarter: 2013Q3

REPORT INFORMATION
  Report Type: Spontaneous
  Country: US (occurrence: US)
  Receive Date: 20130823
  Receipt Date: 20130823
  Transmission Date: 20140515
  Serious: No
  Sender: FDA-Public Use
  Company Number: US-009507513-1308USA006447

PATIENT
  Sex: Female

DRUGS (5)
  1. JANUMET XR [Suspect]
     Indication: TYPE 2 DIABETES MELLITUS
     Dosage: 1 TABLET, TWICE DAILY
     Route: 048
  2. JANUMET XR [Suspect]
     Indication: TYPE 2 DIABETES MELLITUS
     Dosage: 1 TABLET, TWICE DAILY
     Route: 048
  3. BENICAR [Concomitant]
  4. CARVEDILOL [Concomitant]
  5. ASPIRIN [Concomitant]

REACTIONS (5)
  - Eructation [Recovered/Resolved]
  - Eructation [Not Recovered/Not Resolved]
  - Flatulence [Recovered/Resolved]
  - Flatulence [Not Recovered/Not Resolved]
  - Overdose [Unknown]
